FAERS Safety Report 5308015-6 (Version None)
Quarter: 2007Q1

REPORT INFORMATION
  Report Type: 
  Country: None (occurrence: None)
  Receive Date: 20070130
  Receipt Date: 20060711
  Transmission Date: 20070707
  Serious: Yes (Other)
  Sender: FDA-Public Use
  Company Number: 200612920BCC

PATIENT
  Age: 39 Year
  Sex: Female
  Weight: 54.4316 kg

DRUGS (2)
  1. ALEVE COLD AND SINUS [Suspect]
     Indication: SINUS HEADACHE
     Dosage: 220 MG, HS, ORAL
     Route: 048
     Dates: start: 20060706
  2. ZOLOFT [Suspect]
     Dosage: ORAL

REACTIONS (2)
  - CHEST DISCOMFORT [None]
  - DYSPNOEA [None]
